FAERS Safety Report 7686052-4 (Version None)
Quarter: 2011Q3

REPORT INFORMATION
  Report Type: 
  Country: None (occurrence: None)
  Receive Date: 20110816
  Receipt Date: 20110805
  Transmission Date: 20111222
  Serious: Yes (Hospitalization)
  Sender: FDA-Public Use
  Company Number: PHHY2011BE71610

PATIENT
  Sex: Male

DRUGS (1)
  1. METHERGINE [Suspect]
     Dosage: UNK UKN, UNK

REACTIONS (8)
  - PULMONARY ARTERIAL HYPERTENSION [None]
  - RENAL FAILURE [None]
  - IRRITABILITY [None]
  - CONVULSION [None]
  - VOMITING [None]
  - APNOEA [None]
  - COMA [None]
  - VASOCONSTRICTION [None]
